FAERS Safety Report 7129211-1 (Version None)
Quarter: 2010Q4

REPORT INFORMATION
  Report Type: 
  Country: None (occurrence: None)
  Receive Date: 20101130
  Receipt Date: 20101118
  Transmission Date: 20110411
  Serious: Yes (Hospitalization)
  Sender: FDA-Public Use
  Company Number: B0686080A

PATIENT
  Age: 28 Year
  Sex: Female

DRUGS (4)
  1. OFATUMUMAB [Suspect]
     Dosage: 1000MG MONTHLY
     Route: 042
     Dates: start: 20100825
  2. ALPRAZOLAM [Concomitant]
     Indication: ANXIETY
     Dosage: .5MG PER DAY
     Route: 048
  3. OMEPRAZOLE [Concomitant]
     Indication: PROPHYLAXIS
     Dosage: 20MG PER DAY
     Route: 048
     Dates: start: 20100901
  4. MAGNESIUM [Concomitant]
     Dosage: 400UG THREE TIMES PER DAY
     Route: 048
     Dates: start: 20100827

REACTIONS (1)
  - FEBRILE NEUTROPENIA [None]
